FAERS Safety Report 7088456-X (Version None)
Quarter: 2010Q4

REPORT INFORMATION
  Report Type: 
  Country: None (occurrence: None)
  Receive Date: 20101108
  Receipt Date: 20101101
  Transmission Date: 20110411
  Serious: Yes (Other)
  Sender: FDA-Public Use
  Company Number: JP-PFIZER INC-2010128970

PATIENT
  Age: 14 Year
  Sex: Male

DRUGS (4)
  1. SALAZOPYRIN [Suspect]
     Indication: COLITIS ULCERATIVE
     Dosage: UNK
     Dates: start: 20100415, end: 20100630
  2. SALAZOPYRIN [Suspect]
     Dosage: UNK
     Route: 054
     Dates: start: 20100101, end: 20101006
  3. SALAZOPYRIN [Suspect]
     Dosage: 1500 MG, 3X/DAY
     Route: 048
     Dates: start: 20101007
  4. LAC B [Concomitant]
     Dosage: UNK
     Route: 048
     Dates: start: 20100901

REACTIONS (2)
  - HAEMORRHAGE [None]
  - YELLOW SKIN [None]
